FAERS Safety Report 23432718 (Version 1)
Quarter: 2024Q1

REPORT INFORMATION
  Report Type: Spontaneous
  Country: None (occurrence: FR)
  Receive Date: 20240123
  Receipt Date: 20240123
  Transmission Date: 20240410
  Serious: Yes (Death, Other)
  Sender: FDA-Public Use
  Company Number: FR-B.Braun Medical Inc.-2151774

PATIENT

DRUGS (85)
  1. ACETAMINOPHEN [Suspect]
     Active Substance: ACETAMINOPHEN
  2. ACECLOFENAC [Suspect]
     Active Substance: ACECLOFENAC
  3. ASPIRIN [Suspect]
     Active Substance: ASPIRIN
  4. ADALIMUMAB [Suspect]
     Active Substance: ADALIMUMAB\ISOPROPYL ALCOHOL
  5. AGOMELATINE [Suspect]
     Active Substance: AGOMELATINE
  6. ALENDRONIC ACID [Suspect]
     Active Substance: ALENDRONIC ACID
  7. ALISKIREN. [Suspect]
     Active Substance: ALISKIREN HEMIFUMARATE
  8. ANASTROZOLE [Suspect]
     Active Substance: ANASTROZOLE
  9. ATORVASTATIN CALCIUM [Suspect]
     Active Substance: ATORVASTATIN CALCIUM
  10. BISOPROLOL FUMARATE [Suspect]
     Active Substance: BISOPROLOL FUMARATE
  11. BISOPROLOL. [Suspect]
     Active Substance: BISOPROLOL FUMARATE
  12. BRINZOLAMIDE [Suspect]
     Active Substance: BRINZOLAMIDE
  13. CELECOXIB [Suspect]
     Active Substance: CELECOXIB
  14. CHOLECALCIFEROL [Suspect]
     Active Substance: CHOLECALCIFEROL
  15. CILAZAPRIL ANHYDROUS [Suspect]
     Active Substance: CILAZAPRIL ANHYDROUS
  16. CODEINE [Suspect]
     Active Substance: CODEINE
  17. CODEINE PHOSPHATE [Suspect]
     Active Substance: CODEINE PHOSPHATE
  18. CODEINE SULFATE [Suspect]
     Active Substance: CODEINE SULFATE
  19. CODEINE [Suspect]
     Active Substance: CODEINE
  20. DILTIAZEM HYDROCHLORIDE [Suspect]
     Active Substance: DILTIAZEM HYDROCHLORIDE
  21. DILTIAZEM [Suspect]
     Active Substance: DILTIAZEM
  22. DOCETAXEL [Suspect]
     Active Substance: DOCETAXEL\DOCETAXEL ANHYDROUS
  23. DOMPERIDONE MALEATE [Suspect]
     Active Substance: DOMPERIDONE MALEATE
  24. DOMPERIDONE [Suspect]
     Active Substance: DOMPERIDONE
  25. DONEPEZIL [Suspect]
     Active Substance: DONEPEZIL
  26. DUTASTERIDE [Suspect]
     Active Substance: DUTASTERIDE
  27. ENOXAPARIN SODIUM [Suspect]
     Active Substance: ENOXAPARIN SODIUM
  28. ESCHERICHIA COLI [Suspect]
     Active Substance: ESCHERICHIA COLI
  29. ESCHERICHIA COLI [Suspect]
     Active Substance: ESCHERICHIA COLI
  30. ESCITALOPRAM OXALATE [Suspect]
     Active Substance: ESCITALOPRAM OXALATE
  31. ESCITALOPRAM [Suspect]
     Active Substance: ESCITALOPRAM OXALATE
  32. ESOMEPRAZOLE. [Suspect]
     Active Substance: ESOMEPRAZOLE MAGNESIUM
  33. ETANERCEPT [Suspect]
     Active Substance: ETANERCEPT
  34. EXEMESTANE [Suspect]
     Active Substance: EXEMESTANE
  35. EZETIMIBE [Suspect]
     Active Substance: EZETIMIBE
  36. FENOFIBRATE [Suspect]
     Active Substance: FENOFIBRATE
  37. NORFLOXACIN [Suspect]
     Active Substance: NORFLOXACIN
  38. FLUVASTATIN [Suspect]
     Active Substance: FLUVASTATIN SODIUM
  39. GINKGO [Suspect]
     Active Substance: GINKGO
  40. GLUCOSAMINE [Suspect]
     Active Substance: GLUCOSAMINE
  41. NITROGLYCERIN [Suspect]
     Active Substance: NITROGLYCERIN
  42. HUMAN IMMUNOGLOBULIN G [Suspect]
     Active Substance: HUMAN IMMUNOGLOBULIN G
  43. HYDROCHLOROTHIAZIDE [Suspect]
     Active Substance: HYDROCHLOROTHIAZIDE
  44. HYDROMORPHONE [Suspect]
     Active Substance: HYDROMORPHONE
  45. IBANDRONIC ACID [Suspect]
     Active Substance: IBANDRONIC ACID
  46. IMATINIB. [Suspect]
     Active Substance: IMATINIB MESYLATE
  47. INDOMETHACIN [Suspect]
     Active Substance: INDOMETHACIN
  48. INDOMETHACIN SODIUM [Suspect]
     Active Substance: INDOMETHACIN SODIUM
  49. IODINE [Suspect]
     Active Substance: IODINE
  50. HYDROMORPHONE HYDROCHLORIDE [Suspect]
     Active Substance: HYDROMORPHONE HYDROCHLORIDE
  51. LEDIPASVIR [Suspect]
     Active Substance: LEDIPASVIR
  52. LETROZOLE [Suspect]
     Active Substance: LETROZOLE
  53. MIRTAZAPINE [Suspect]
     Active Substance: MIRTAZAPINE
  54. MYCOPHENOLATE MOFETIL [Suspect]
     Active Substance: MYCOPHENOLATE MOFETIL
  55. MYCOPHENOLIC ACID [Suspect]
     Active Substance: MYCOPHENOLIC ACID
  56. NILOTINIB [Suspect]
     Active Substance: NILOTINIB
  57. NIMESULIDE [Suspect]
     Active Substance: NIMESULIDE
  58. NITROGLYCERIN [Suspect]
     Active Substance: NITROGLYCERIN
  59. NITROGLYCERIN [Suspect]
     Active Substance: NITROGLYCERIN
  60. PENTAZOCINE [Suspect]
     Active Substance: PENTAZOCINE
  61. PENTOXIFYLLINE [Suspect]
     Active Substance: PENTOXIFYLLINE
  62. PITAVASTATIN. [Suspect]
     Active Substance: PITAVASTATIN CALCIUM
  63. POTASSIUM IODIDE [Suspect]
     Active Substance: POTASSIUM IODIDE
  64. VENLAFAXINE HYDROCHLORIDE [Suspect]
     Active Substance: VENLAFAXINE HYDROCHLORIDE
  65. PRAVASTATIN [Suspect]
     Active Substance: PRAVASTATIN
  66. PREGABALIN [Suspect]
     Active Substance: PREGABALIN
  67. PROPRANOLOL [Suspect]
     Active Substance: PROPRANOLOL HYDROCHLORIDE
  68. RIBAVIRIN [Suspect]
     Active Substance: RIBAVIRIN
  69. SERTRALINE [Suspect]
     Active Substance: SERTRALINE HYDROCHLORIDE
  70. SERTRALINE HYDROCHLORIDE [Suspect]
     Active Substance: SERTRALINE HYDROCHLORIDE
  71. SIMVASTATIN [Suspect]
     Active Substance: SIMVASTATIN
  72. SODIUM PICOSULFATE [Suspect]
     Active Substance: SODIUM PICOSULFATE
  73. SOFOSBUVIR [Suspect]
     Active Substance: SOFOSBUVIR
  74. TAMSULOSIN HYDROCHLORIDE [Suspect]
     Active Substance: TAMSULOSIN HYDROCHLORIDE
  75. TELMISARTAN [Suspect]
     Active Substance: TELMISARTAN
  76. TOCILIZUMAB [Suspect]
     Active Substance: TOCILIZUMAB
  77. VENLAFAXINE [Suspect]
     Active Substance: VENLAFAXINE HYDROCHLORIDE
  78. VERAPAMIL HYDROCHLORIDE [Suspect]
     Active Substance: VERAPAMIL HYDROCHLORIDE
  79. VERAPAMIL [Suspect]
     Active Substance: VERAPAMIL HYDROCHLORIDE
  80. ZOLEDRONIC ACID [Suspect]
     Active Substance: ZOLEDRONIC ACID
  81. BUPRENORPHINE [Suspect]
     Active Substance: BUPRENORPHINE
  82. FLUOXETINE HYDROCHLORIDE [Suspect]
     Active Substance: FLUOXETINE HYDROCHLORIDE
  83. TRAMADOL HYDROCHLORIDE [Suspect]
     Active Substance: TRAMADOL HYDROCHLORIDE
  84. VORTIOXETINE [Suspect]
     Active Substance: VORTIOXETINE
  85. XYZAL [Suspect]
     Active Substance: LEVOCETIRIZINE DIHYDROCHLORIDE

REACTIONS (45)
  - Diarrhoea [None]
  - Insomnia [None]
  - Sepsis [None]
  - Somnolence [None]
  - Pyrexia [None]
  - Generalised oedema [None]
  - Vision blurred [None]
  - Myalgia [None]
  - Abdominal pain upper [None]
  - Dyspnoea [None]
  - Amaurosis fugax [None]
  - Presyncope [None]
  - Blood pressure increased [None]
  - Dizziness [None]
  - Syncope [None]
  - Malaise [None]
  - Nausea [None]
  - Asthenia [None]
  - Fall [None]
  - Drug interaction [None]
  - Fatigue [None]
  - Altered state of consciousness [None]
  - Ocular discomfort [None]
  - Decreased appetite [None]
  - Tachycardia [None]
  - Vomiting [None]
  - Arthralgia [None]
  - Abdominal pain [None]
  - Tinnitus [None]
  - Headache [None]
  - Head discomfort [None]
  - Haematemesis [None]
  - Ascites [None]
  - Eye pain [None]
  - Photophobia [None]
  - Haematuria [None]
  - Chills [None]
  - Coma [None]
  - Cough [None]
  - Urinary tract disorder [None]
  - Haemorrhagic stroke [None]
  - Cardio-respiratory arrest [None]
  - Pruritus [None]
  - Diplopia [None]
  - Blindness [None]
